FAERS Safety Report 17514950 (Version 1)
Quarter: 2020Q1

REPORT INFORMATION
  Report Type: Spontaneous
  Country: HR (occurrence: HR)
  Receive Date: 20200309
  Receipt Date: 20200309
  Transmission Date: 20200409
  Serious: Yes (Other)
  Sender: FDA-Public Use
  Company Number: HR-TEVA-2020-HR-1195910

PATIENT
  Age: 57 Year
  Sex: Female
  Weight: 77 kg

DRUGS (2)
  1. NORMABEL [Concomitant]
     Active Substance: DIAZEPAM
     Indication: ADJUSTMENT DISORDER
     Dosage: 5 MG
     Route: 048
  2. ARIPIPRAZOL PLIVA [Suspect]
     Active Substance: ARIPIPRAZOLE
     Indication: PSYCHOTIC DISORDER
     Dosage: 15 MG
     Route: 048
     Dates: start: 201806

REACTIONS (3)
  - Myalgia [Recovered/Resolved]
  - Pollakiuria [Recovered/Resolved]
  - Suicidal ideation [Recovered/Resolved]

NARRATIVE: CASE EVENT DATE: 201907
